FAERS Safety Report 5508335-6 (Version None)
Quarter: 2007Q4

REPORT INFORMATION
  Report Type: 
  Country: None (occurrence: None)
  Receive Date: 20071106
  Receipt Date: 20071026
  Transmission Date: 20080405
  Serious: Yes (Hospitalization)
  Sender: FDA-Public Use
  Company Number: FI-ABBOTT-07P-055-0422231-00

PATIENT
  Age: 39 Year
  Sex: Female

DRUGS (1)
  1. REDUCTIL 10MG [Suspect]
     Indication: WEIGHT CONTROL
     Route: 048
     Dates: start: 20050822, end: 20060901

REACTIONS (4)
  - CAECITIS [None]
  - DERMOGRAPHISM [None]
  - GOUT [None]
  - PRURITUS [None]
